FAERS Safety Report 10975349 (Version 1)
Quarter: 2015Q1

REPORT INFORMATION
  Report Type: Spontaneous
  Country: US (occurrence: None)
  Receive Date: 20150226
  Receipt Date: 20150226
  Transmission Date: 20150721
  Serious: No
  Sender: FDA-Public Use
  Company Number: TPA2009A01543

PATIENT
  Age: 70 Year
  Sex: Male
  Weight: 96.16 kg

DRUGS (5)
  1. COUMADIN [Concomitant]
     Active Substance: WARFARIN SODIUM
  2. ULORIC [Suspect]
     Active Substance: FEBUXOSTAT
     Indication: GOUT
     Route: 048
     Dates: start: 20090402
  3. COLCHICINE. [Concomitant]
     Active Substance: COLCHICINE
  4. LASIX [Concomitant]
     Active Substance: FUROSEMIDE
  5. SIMVASTATIN. [Concomitant]
     Active Substance: SIMVASTATIN

REACTIONS (2)
  - Liver function test abnormal [None]
  - Condition aggravated [None]

NARRATIVE: CASE EVENT DATE: 20090617
